FAERS Safety Report 10086954 (Version 2)
Quarter: 2014Q2

REPORT INFORMATION
  Report Type: Spontaneous
  Country: IT (occurrence: IT)
  Receive Date: 20140418
  Receipt Date: 20140626
  Transmission Date: 20141212
  Serious: Yes (Hospitalization)
  Sender: FDA-Public Use
  Company Number: IT-WATSON-2014-07692

PATIENT
  Age: 34 Year
  Sex: Female

DRUGS (3)
  1. RAMIPRIL (UNKNOWN) [Suspect]
     Indication: INTENTIONAL SELF-INJURY
     Dosage: 21 DF, DAILY
     Route: 048
     Dates: start: 20130925, end: 20130925
  2. AMLODIPINE BESYLATE (UNKNOWN) [Suspect]
     Indication: INTENTIONAL SELF-INJURY
     Dosage: 14 DF, DAILY
     Route: 048
     Dates: start: 20130925, end: 20130925
  3. DELTACORTENE [Suspect]
     Indication: INTENTIONAL SELF-INJURY
     Dosage: 6 DF, DAILY
     Route: 048
     Dates: start: 20130925, end: 20130925

REACTIONS (2)
  - Hypotension [Recovered/Resolved]
  - Drug abuse [Recovered/Resolved]
